FAERS Safety Report 8530434-5 (Version None)
Quarter: 2012Q3

REPORT INFORMATION
  Report Type: 
  Country: None (occurrence: None)
  Receive Date: 20120723
  Receipt Date: 20120716
  Transmission Date: 20120928
  Serious: Yes (Hospitalization)
  Sender: FDA-Public Use
  Company Number: US-SANOFI-AVENTIS-2012SA041419

PATIENT
  Age: 77 Year
  Sex: Male
  Weight: 106.36 kg

DRUGS (2)
  1. LANTUS [Suspect]
     Indication: TYPE 2 DIABETES MELLITUS
     Dosage: TOOK 30 UNITS IN THE MORNING AND 60 UNITS IN THE EVENING.
     Route: 058
     Dates: start: 20120301
  2. SOLOSTAR [Suspect]
     Indication: TYPE 2 DIABETES MELLITUS
     Dates: start: 20120301

REACTIONS (3)
  - PLEURAL EFFUSION [None]
  - DYSPNOEA [None]
  - BLOOD GLUCOSE INCREASED [None]
